FAERS Safety Report 13792816 (Version 1)
Quarter: 2017Q3

REPORT INFORMATION
  Report Type: Spontaneous
  Country: US (occurrence: US)
  Receive Date: 20170726
  Receipt Date: 20170726
  Transmission Date: 20171127
  Serious: Yes (Other)
  Sender: FDA-Public Use
  Company Number: US-ASTRAZENECA-2017SE74269

PATIENT
  Age: 54 Year
  Sex: Female

DRUGS (4)
  1. DILANTIN [Suspect]
     Active Substance: PHENYTOIN
     Route: 048
  2. ZOLOFT [Suspect]
     Active Substance: SERTRALINE HYDROCHLORIDE
     Route: 048
  3. LYRICA [Suspect]
     Active Substance: PREGABALIN
     Indication: PARTIAL SEIZURES
     Dosage: 150.0MG UNKNOWN
     Route: 048
  4. SEROQUEL [Suspect]
     Active Substance: QUETIAPINE FUMARATE
     Route: 048

REACTIONS (16)
  - Depression [Unknown]
  - Peripheral swelling [Unknown]
  - Myalgia [Unknown]
  - Swelling [Unknown]
  - Headache [Unknown]
  - Cognitive disorder [Unknown]
  - Hot flush [Unknown]
  - Palpitations [Unknown]
  - Ataxia [Unknown]
  - Anxiety [Unknown]
  - Gliosis [Unknown]
  - Muscle spasms [Unknown]
  - Somnolence [Unknown]
  - Seizure [Unknown]
  - Chest discomfort [Unknown]
  - Partial seizures [Unknown]
